FAERS Safety Report 6775213-4 (Version None)
Quarter: 2010Q2

REPORT INFORMATION
  Report Type: 
  Country: None (occurrence: None)
  Receive Date: 20100615
  Receipt Date: 20100615
  Transmission Date: 20101027
  Serious: No
  Sender: FDA-Public Use
  Company Number: None

PATIENT
  Sex: Female

DRUGS (1)
  1. CHLORPROMAZINE [Suspect]
     Dosage: 200AM+NOON+400HS AM, NOON, HS PO }1 YEAR
     Route: 048
     Dates: start: 20090611, end: 20100614

REACTIONS (1)
  - BLOOD PROLACTIN INCREASED [None]
